FAERS Safety Report 6065564-3 (Version None)
Quarter: 2009Q1

REPORT INFORMATION
  Report Type: 
  Country: None (occurrence: None)
  Receive Date: 20090204
  Receipt Date: 20090129
  Transmission Date: 20090719
  Serious: Yes (Hospitalization)
  Sender: FDA-Public Use
  Company Number: JP-B.I. PHARMACEUTICALS,INC./RIDGEFIELD-2009-BP-00471NB

PATIENT
  Sex: Female
  Weight: 50 kg

DRUGS (6)
  1. MICARDIS [Suspect]
     Indication: HYPERTENSION
     Dosage: 40MG
     Route: 048
     Dates: start: 20060529
  2. ATELEC [Suspect]
     Indication: HYPERTENSION
     Dosage: 5MG
     Route: 048
     Dates: start: 20080123, end: 20080709
  3. ADALAT CC [Concomitant]
     Indication: HYPERTENSION
     Dosage: 20MG
     Route: 048
     Dates: start: 20010124
  4. PARIET [Concomitant]
     Dosage: 20MG
     Route: 048
     Dates: start: 20060419, end: 20080723
  5. AMARYL [Concomitant]
     Dosage: 1MG
     Route: 048
     Dates: start: 20041112, end: 20080723
  6. BENET [Concomitant]
     Dosage: 2.5MG
     Route: 048
     Dates: start: 20050225, end: 20080723

REACTIONS (2)
  - CARDIAC FAILURE [None]
  - LIVER DISORDER [None]
